FAERS Safety Report 19914203 (Version 2)
Quarter: 2021Q4

REPORT INFORMATION
  Report Type: Report from Study
  Country: ES (occurrence: ES)
  Receive Date: 20211004
  Receipt Date: 20211018
  Transmission Date: 20220303
  Serious: Yes (Life-Threatening, Hospitalization, Other)
  Sender: FDA-Public Use
  Company Number: ES-CELLTRION HEALTHCARE HUNGARY KFT-2021ES007490

PATIENT

DRUGS (15)
  1. CISPLATIN [Suspect]
     Active Substance: CISPLATIN
     Indication: Product used for unknown indication
     Dosage: UNK
  2. CARBOPLATIN [Suspect]
     Active Substance: CARBOPLATIN
     Indication: Product used for unknown indication
     Dosage: 530 MG
     Route: 042
  3. CARBOPLATIN [Suspect]
     Active Substance: CARBOPLATIN
     Dosage: 350 MILLIGRAM, Q3W
     Route: 042
     Dates: start: 20210525, end: 20210615
  4. PERTUZUMAB [Suspect]
     Active Substance: PERTUZUMAB
     Indication: Product used for unknown indication
     Dosage: 840 MG
     Route: 042
     Dates: start: 20210525
  5. PERTUZUMAB [Suspect]
     Active Substance: PERTUZUMAB
     Dosage: 420 MILLIGRAM, Q3W
     Route: 042
     Dates: start: 20210525, end: 20210615
  6. HERZUMA [Suspect]
     Active Substance: TRASTUZUMAB-PKRB
     Indication: Product used for unknown indication
     Dosage: 370 MILLIGRAM, Q3W
     Route: 042
     Dates: start: 20210515, end: 20210515
  7. HERZUMA [Suspect]
     Active Substance: TRASTUZUMAB-PKRB
     Dosage: 500 MG
     Route: 042
     Dates: start: 20210525
  8. DOCETAXEL [Suspect]
     Active Substance: DOCETAXEL
     Indication: Product used for unknown indication
     Dosage: 120 MG
     Route: 042
     Dates: start: 20210525
  9. DOCETAXEL [Suspect]
     Active Substance: DOCETAXEL
     Dosage: 88 MILLIGRAM, Q3W
     Route: 042
     Dates: start: 20210525, end: 20210615
  10. OLMESARTAN MEDOXOMIL [Concomitant]
     Active Substance: OLMESARTAN MEDOXOMIL
     Indication: Hypertension
     Dosage: 20 MG (1/24 H)
  11. SERTRALINE HYDROCHLORIDE [Concomitant]
     Active Substance: SERTRALINE HYDROCHLORIDE
     Indication: Depression
     Dosage: 50 MG (1/24 H)
     Route: 048
  12. SIMVASTATIN [Concomitant]
     Active Substance: SIMVASTATIN
     Indication: Dyslipidaemia
     Dosage: 20 MG (1/24 H)
     Route: 048
  13. ULTRA LEVURA                       /00838001/ [Concomitant]
     Dosage: 250 MILLIGRAM, QD
     Route: 048
  14. LOPERAMIDA                         /00384301/ [Concomitant]
     Dosage: 2 MILLIGRAM, QD
     Route: 048
     Dates: start: 20210531
  15. CIPROFLOXACIN [Concomitant]
     Active Substance: CIPROFLOXACIN
     Dosage: 400 MILLIGRAM, BID
     Route: 048
     Dates: start: 20210608, end: 20210609

REACTIONS (8)
  - Neutropenia [Not Recovered/Not Resolved]
  - Febrile neutropenia [Not Recovered/Not Resolved]
  - Gastrointestinal toxicity [Recovered/Resolved]
  - Hypotension [Recovering/Resolving]
  - Vomiting [Not Recovered/Not Resolved]
  - Diarrhoea [Not Recovered/Not Resolved]
  - Asthenia [Unknown]
  - Nausea [Not Recovered/Not Resolved]

NARRATIVE: CASE EVENT DATE: 20210530
